FAERS Safety Report 11196284 (Version 1)
Quarter: 2015Q2

REPORT INFORMATION
  Report Type: Spontaneous
  Country: US (occurrence: US)
  Receive Date: 20150617
  Receipt Date: 20150617
  Transmission Date: 20150821
  Serious: Yes (Other)
  Sender: FDA-Public Use
  Company Number: US-APOTEX-2015AP005387

PATIENT
  Sex: Female

DRUGS (13)
  1. MINOXIDIL. [Suspect]
     Active Substance: MINOXIDIL
     Dosage: INCREASING OVER 5 DAYS TO 0.6 MG/KG/DAY
     Route: 048
  2. FUROSEMIDE. [Suspect]
     Active Substance: FUROSEMIDE
     Indication: FLUID RETENTION
     Route: 048
  3. CAPTOPRIL. [Suspect]
     Active Substance: CAPTOPRIL
     Indication: HYPERTENSION NEONATAL
     Dosage: UNK
     Route: 065
  4. LABETALOL HYDROCHLORIDE INJECTION USP [Suspect]
     Active Substance: LABETALOL HYDROCHLORIDE
     Indication: HYPERTENSION NEONATAL
     Route: 051
  5. AMLODIPINE BESYLATE. [Suspect]
     Active Substance: AMLODIPINE BESYLATE
     Dosage: UNK
     Route: 048
  6. ENALAPRIL [Suspect]
     Active Substance: ENALAPRIL
     Indication: HYPERTENSION NEONATAL
     Route: 048
  7. MINOXIDIL. [Suspect]
     Active Substance: MINOXIDIL
     Indication: HYPERTENSION NEONATAL
     Dosage: 0.15 MG/KG, DAILY
     Route: 048
  8. FUROSEMIDE. [Suspect]
     Active Substance: FUROSEMIDE
     Dosage: UNK
     Route: 065
  9. AMLODIPINE BESYLATE. [Suspect]
     Active Substance: AMLODIPINE BESYLATE
     Indication: HYPERTENSION NEONATAL
     Dosage: UNK
     Route: 065
  10. PROPANOLOL                         /00030001/ [Suspect]
     Active Substance: PROPRANOLOL HYDROCHLORIDE
     Indication: PRODUCT USED FOR UNKNOWN INDICATION
     Route: 065
  11. CLONIDINE TRANSDERMAL SYSTEM [Suspect]
     Active Substance: CLONIDINE
     Indication: HYPERTENSION NEONATAL
     Dosage: UNK
     Route: 065
  12. NITROPRUSSIDE [Suspect]
     Active Substance: NITROPRUSSIDE
     Indication: HYPERTENSION NEONATAL
     Route: 051
  13. CLONIDINE. [Suspect]
     Active Substance: CLONIDINE
     Indication: HYPERTENSION
     Route: 048

REACTIONS (7)
  - Oliguria [Unknown]
  - Hyperkalaemia [Unknown]
  - Decreased appetite [Recovered/Resolved]
  - Renal impairment [Unknown]
  - Drug ineffective [Unknown]
  - Cardiac failure congestive [Recovered/Resolved]
  - Fluid retention [Unknown]
